FAERS Safety Report 5837476-9 (Version None)
Quarter: 2008Q3

REPORT INFORMATION
  Report Type: 
  Country: None (occurrence: None)
  Receive Date: 20080807
  Receipt Date: 20080804
  Transmission Date: 20090109
  Serious: Yes (Other)
  Sender: FDA-Public Use
  Company Number: US-ELI_LILLY_AND_COMPANY-US200808000947

PATIENT
  Age: 74 Year
  Sex: Female

DRUGS (10)
  1. HUMALOG [Suspect]
     Dates: start: 20030101
  2. HUMALOG [Suspect]
     Dosage: 3 U, UNK
     Dates: start: 20080701
  3. HUMULIN N [Suspect]
     Dates: start: 19730101
  4. PLAVIX [Concomitant]
  5. ALTACE [Concomitant]
     Dosage: 5 MG, UNK
  6. PREVACID [Concomitant]
     Dosage: 30 MG, UNK
  7. LASIX [Concomitant]
     Dosage: 40 MG, DAILY (1/D)
  8. ASPIRIN [Concomitant]
     Dosage: 81 MG, UNK
  9. FOLIC ACID [Concomitant]
     Dosage: 400 MG, DAILY (1/D)
  10. DARVOCET [Concomitant]
     Dosage: UNK, AS NEEDED

REACTIONS (13)
  - ARTHROPATHY [None]
  - BLOOD GLUCOSE INCREASED [None]
  - ERYTHEMA [None]
  - HYPOTHYROIDISM [None]
  - INSOMNIA [None]
  - MOBILITY DECREASED [None]
  - OEDEMA PERIPHERAL [None]
  - OSTEOARTHRITIS [None]
  - SPINAL COLUMN STENOSIS [None]
  - SUPRAVENTRICULAR TACHYCARDIA [None]
  - VASCULAR GRAFT [None]
  - VISUAL ACUITY REDUCED [None]
  - WEIGHT INCREASED [None]
